FAERS Safety Report 19956721 (Version 1)
Quarter: 2021Q4

REPORT INFORMATION
  Report Type: Spontaneous
  Country: CA (occurrence: CA)
  Receive Date: 20211014
  Receipt Date: 20211014
  Transmission Date: 20220303
  Serious: Yes (Hospitalization)
  Sender: FDA-Public Use
  Company Number: CA-TEVA-2021-CA-1965504

PATIENT
  Age: 56 Year
  Sex: Male

DRUGS (2)
  1. CYCLOBENZAPRINE [Suspect]
     Active Substance: CYCLOBENZAPRINE
     Indication: Limb injury
     Route: 048
  2. TYLENOL WITH CODEINE [Concomitant]
     Active Substance: ACETAMINOPHEN\CODEINE PHOSPHATE
     Route: 065

REACTIONS (7)
  - Altered state of consciousness [Unknown]
  - Chills [Unknown]
  - Confusional state [Unknown]
  - Delirium [Unknown]
  - Hallucination [Unknown]
  - Pyrexia [Unknown]
  - Tremor [Unknown]
